FAERS Safety Report 14385456 (Version 2)
Quarter: 2018Q4

REPORT INFORMATION
  Report Type: Spontaneous
  Country: US (occurrence: US)
  Receive Date: 20180115
  Receipt Date: 20181012
  Transmission Date: 20190204
  Serious: Yes (Other)
  Sender: FDA-Public Use
  Company Number: US-SA-2017SA061458

PATIENT
  Age: 63 Year
  Sex: Female
  Weight: 96 kg

DRUGS (7)
  1. TAXOTERE [Suspect]
     Active Substance: DOCETAXEL
     Dosage: UNK,Q3W
     Route: 042
     Dates: start: 20150205, end: 20150205
  2. PARAPLATIN [Concomitant]
     Active Substance: CARBOPLATIN
     Indication: CHEMOTHERAPY
     Dosage: 720 MG,QCY
     Dates: start: 20141013, end: 20141013
  3. OMEPRAZOLE. [Concomitant]
     Active Substance: OMEPRAZOLE
     Dosage: UNK
     Dates: start: 20020101
  4. TAXOTERE [Suspect]
     Active Substance: DOCETAXEL
     Indication: BREAST CANCER FEMALE
     Dosage: 155.2 MG,Q3W
     Route: 042
     Dates: start: 20141013, end: 20141013
  5. PARAPLATIN [Concomitant]
     Active Substance: CARBOPLATIN
     Dosage: 540 MG,QCY
     Dates: start: 20150205, end: 20150205
  6. PARAPLATIN [Concomitant]
     Active Substance: CARBOPLATIN
     Dosage: 540 MG, QCY
     Dates: start: 20141113, end: 20141113
  7. DECADRON [DEXAMETHASONE] [Concomitant]
     Dosage: UNK

REACTIONS (6)
  - Alopecia [Recovering/Resolving]
  - Impaired quality of life [Unknown]
  - Anxiety [Unknown]
  - Psychological trauma [Unknown]
  - Pain [Unknown]
  - Emotional distress [Unknown]

NARRATIVE: CASE EVENT DATE: 20150805
